FAERS Safety Report 8335117-2 (Version None)
Quarter: 2012Q2

REPORT INFORMATION
  Report Type: 
  Country: None (occurrence: None)
  Receive Date: 20120503
  Receipt Date: 20120418
  Transmission Date: 20120825
  Serious: Yes (Other)
  Sender: FDA-Public Use
  Company Number: CN-JNJFOC-20120500665

PATIENT
  Sex: Male
  Weight: 62 kg

DRUGS (2)
  1. LEVOFLOXACIN [Suspect]
     Indication: PRODUCT USED FOR UNKNOWN INDICATION
     Route: 065
  2. FENTANYL-100 [Suspect]
     Indication: PAIN
     Route: 062
     Dates: start: 20110506, end: 20110507

REACTIONS (10)
  - PAIN [None]
  - PALPITATIONS [None]
  - VOMITING [None]
  - PHLEBITIS [None]
  - URTICARIA [None]
  - DISCOMFORT [None]
  - TROPONIN T INCREASED [None]
  - NODAL ARRHYTHMIA [None]
  - BLOOD CREATINE PHOSPHOKINASE MB [None]
  - NAUSEA [None]
